FAERS Safety Report 5805395-X (Version None)
Quarter: 2008Q3

REPORT INFORMATION
  Report Type: 
  Country: None (occurrence: None)
  Receive Date: 20080710
  Receipt Date: 20080708
  Transmission Date: 20090109
  Serious: Yes (Death, Hospitalization, Other)
  Sender: FDA-Public Use
  Company Number: US-BRISTOL-MYERS SQUIBB COMPANY-14203574

PATIENT
  Age: 79 Year
  Sex: Female
  Weight: 89 kg

DRUGS (15)
  1. COUMADIN [Suspect]
     Indication: ATRIAL FIBRILLATION
     Dosage: 1 DOSAGE FORM = 1 MG 2DAYS IN A WEEK 2 MG OTHER DAYS OF THE WEEK.
     Route: 048
     Dates: end: 20080424
  2. COUMADIN [Suspect]
     Indication: THROMBOSIS
     Dosage: 1 DOSAGE FORM = 1 MG 2DAYS IN A WEEK 2 MG OTHER DAYS OF THE WEEK.
     Route: 048
     Dates: end: 20080424
  3. PLAVIX [Suspect]
     Indication: ATRIAL FIBRILLATION
     Route: 048
     Dates: start: 20080421, end: 20080424
  4. PLAVIX [Suspect]
     Indication: THROMBOSIS
     Route: 048
     Dates: start: 20080421, end: 20080424
  5. PLAVIX [Suspect]
     Indication: CORONARY ARTERY DISEASE
     Route: 048
     Dates: start: 20080421, end: 20080424
  6. PLAVIX [Suspect]
     Indication: CORONARY ARTERY THROMBOSIS
     Route: 048
     Dates: start: 20080421, end: 20080424
  7. ASPIRIN [Suspect]
     Indication: ATRIAL FIBRILLATION
     Route: 048
     Dates: end: 20080501
  8. ASPIRIN [Suspect]
     Indication: THROMBOSIS
     Route: 048
     Dates: end: 20080501
  9. BUMETANIDE [Concomitant]
     Dosage: FORMULATION : TABLET
     Route: 048
  10. ENALAPRIL MALEATE [Concomitant]
     Dosage: 1DF= 10MG AM AND 5MG HS. FORMULATION : TABLET
     Route: 048
  11. ATORVASTATIN CALCIUM [Concomitant]
     Dosage: FORMULATION : TABLET
     Route: 048
  12. ZALEPLON [Concomitant]
     Dosage: FORMULATION : TABLET
     Route: 048
  13. POTASSIUM CHLORIDE [Concomitant]
     Dosage: FORMULATION : TABLET
     Route: 048
  14. LEVOTHYROXINE SODIUM [Concomitant]
     Dosage: FORMULATION : TABLET
     Route: 048
  15. FUROSEMIDE [Concomitant]

REACTIONS (9)
  - ANAEMIA [None]
  - BRADYCARDIA [None]
  - HAEMATOCRIT DECREASED [None]
  - HAEMATOMA [None]
  - HAEMORRHAGE [None]
  - HYPERKALAEMIA [None]
  - HYPONATRAEMIA [None]
  - RESPIRATORY FAILURE [None]
  - STAPHYLOCOCCAL SEPSIS [None]
